FAERS Safety Report 22517962 (Version 1)
Quarter: 2023Q2

REPORT INFORMATION
  Report Type: Spontaneous
  Country: US (occurrence: US)
  Receive Date: 20230605
  Receipt Date: 20230605
  Transmission Date: 20230722
  Serious: No
  Sender: FDA-Public Use
  Company Number: US-ALKERMES INC.-ALK-2023-002225

PATIENT
  Sex: Female

DRUGS (1)
  1. VIVITROL [Suspect]
     Active Substance: NALTREXONE
     Indication: Illness
     Dosage: 380 MILLIGRAM, QMO
     Route: 030

REACTIONS (4)
  - Gait disturbance [Unknown]
  - Injection site reaction [Unknown]
  - Injection site pain [Unknown]
  - Injection site mass [Unknown]
